FAERS Safety Report 9996371 (Version 2)
Quarter: 2014Q3

REPORT INFORMATION
  Report Type: Spontaneous
  Country: US (occurrence: US)
  Receive Date: 20140311
  Receipt Date: 20140710
  Transmission Date: 20150326
  Serious: Yes (Other)
  Sender: FDA-Public Use
  Company Number: US-GLAXOSMITHKLINE-A1064364A

PATIENT
  Age: 56 Year
  Sex: Female
  Weight: 75.5 kg

DRUGS (1)
  1. TREXIMET [Suspect]
     Active Substance: NAPROXEN SODIUM\SUMATRIPTAN SUCCINATE
     Indication: PRODUCT USED FOR UNKNOWN INDICATION
     Route: 065

REACTIONS (8)
  - Hypertension [Unknown]
  - Headache [Unknown]
  - Post-traumatic stress disorder [Unknown]
  - Depression [Unknown]
  - Convulsion [Unknown]
  - Panic attack [Unknown]
  - Dysgraphia [Unknown]
  - Bone disorder [Unknown]
